FAERS Safety Report 6338383-8 (Version None)
Quarter: 2009Q3

REPORT INFORMATION
  Report Type: 
  Country: None (occurrence: None)
  Receive Date: 20090901
  Receipt Date: 20090822
  Transmission Date: 20100115
  Serious: Yes (Other)
  Sender: FDA-Public Use
  Company Number: ENT 2009-0141

PATIENT
  Sex: Female

DRUGS (1)
  1. COMTAN [Suspect]
     Dosage: 25/100,
     Dates: start: 20090801

REACTIONS (1)
  - HAEMATOCHEZIA [None]
